FAERS Safety Report 8358354-X (Version None)
Quarter: 2012Q2

REPORT INFORMATION
  Report Type: 
  Country: None (occurrence: None)
  Receive Date: 20120514
  Receipt Date: 20110502
  Transmission Date: 20120825
  Serious: Yes (Hospitalization)
  Sender: FDA-Public Use
  Company Number: US-ALEXION-A201100635

PATIENT
  Sex: Male

DRUGS (3)
  1. FOLIC ACID [Concomitant]
     Dosage: UNK
  2. WARFARIN SODIUM [Concomitant]
     Dosage: UNK
  3. SOLIRIS [Suspect]
     Indication: PAROXYSMAL NOCTURNAL HAEMOGLOBINURIA
     Dosage: 900 MG
     Route: 042

REACTIONS (1)
  - PERITONSILLAR ABSCESS [None]
